FAERS Safety Report 24716564 (Version 2)
Quarter: 2025Q2

REPORT INFORMATION
  Report Type: Spontaneous
  Country: US (occurrence: US)
  Receive Date: 20241210
  Receipt Date: 20250429
  Transmission Date: 20250717
  Serious: Yes (Other)
  Sender: MYLAN
  Company Number: US-MYLANLABS-2024M1109742

PATIENT
  Age: 28 Year
  Sex: Female

DRUGS (28)
  1. CROMOLYN SODIUM [Suspect]
     Active Substance: CROMOLYN SODIUM
     Indication: Hypereosinophilic syndrome
  2. CROMOLYN SODIUM [Suspect]
     Active Substance: CROMOLYN SODIUM
     Route: 065
  3. CROMOLYN SODIUM [Suspect]
     Active Substance: CROMOLYN SODIUM
     Route: 065
  4. CROMOLYN SODIUM [Suspect]
     Active Substance: CROMOLYN SODIUM
  5. MEPOLIZUMAB [Suspect]
     Active Substance: MEPOLIZUMAB
     Indication: Hypereosinophilic syndrome
     Dosage: 300 MILLIGRAM, MONTHLY
  6. MEPOLIZUMAB [Suspect]
     Active Substance: MEPOLIZUMAB
     Dosage: 300 MILLIGRAM, MONTHLY
     Route: 058
  7. MEPOLIZUMAB [Suspect]
     Active Substance: MEPOLIZUMAB
     Dosage: 300 MILLIGRAM, MONTHLY
     Route: 058
  8. MEPOLIZUMAB [Suspect]
     Active Substance: MEPOLIZUMAB
     Dosage: 300 MILLIGRAM, MONTHLY
  9. BENRALIZUMAB [Suspect]
     Active Substance: BENRALIZUMAB
     Indication: Eosinophilic oesophagitis
  10. BENRALIZUMAB [Suspect]
     Active Substance: BENRALIZUMAB
     Route: 065
  11. BENRALIZUMAB [Suspect]
     Active Substance: BENRALIZUMAB
     Route: 065
  12. BENRALIZUMAB [Suspect]
     Active Substance: BENRALIZUMAB
  13. AZATHIOPRINE [Suspect]
     Active Substance: AZATHIOPRINE
     Indication: Gastroenteritis eosinophilic
  14. AZATHIOPRINE [Suspect]
     Active Substance: AZATHIOPRINE
     Route: 065
  15. AZATHIOPRINE [Suspect]
     Active Substance: AZATHIOPRINE
     Route: 065
  16. AZATHIOPRINE [Suspect]
     Active Substance: AZATHIOPRINE
  17. PREDNISONE [Concomitant]
     Active Substance: PREDNISONE
     Indication: Hypereosinophilic syndrome
     Dosage: 30 MILLIGRAM, QD
  18. PREDNISONE [Concomitant]
     Active Substance: PREDNISONE
     Dosage: 30 MILLIGRAM, QD
  19. PREDNISONE [Concomitant]
     Active Substance: PREDNISONE
     Dosage: 30 MILLIGRAM, QD
     Route: 065
  20. PREDNISONE [Concomitant]
     Active Substance: PREDNISONE
     Dosage: 30 MILLIGRAM, QD
     Route: 065
  21. PREDNISONE [Concomitant]
     Active Substance: PREDNISONE
  22. PREDNISONE [Concomitant]
     Active Substance: PREDNISONE
  23. PREDNISONE [Concomitant]
     Active Substance: PREDNISONE
     Route: 065
  24. PREDNISONE [Concomitant]
     Active Substance: PREDNISONE
     Route: 065
  25. BUDESONIDE [Concomitant]
     Active Substance: BUDESONIDE
     Indication: Eosinophilic oesophagitis
  26. BUDESONIDE [Concomitant]
     Active Substance: BUDESONIDE
     Route: 065
  27. BUDESONIDE [Concomitant]
     Active Substance: BUDESONIDE
     Route: 065
  28. BUDESONIDE [Concomitant]
     Active Substance: BUDESONIDE

REACTIONS (2)
  - Drug ineffective for unapproved indication [Unknown]
  - Off label use [Unknown]
